FAERS Safety Report 7594356-9 (Version None)
Quarter: 2011Q3

REPORT INFORMATION
  Report Type: 
  Country: None (occurrence: None)
  Receive Date: 20110707
  Receipt Date: 20110628
  Transmission Date: 20111222
  Serious: Yes (Hospitalization)
  Sender: FDA-Public Use
  Company Number: US-BIOGENIDEC-2011BI011581

PATIENT
  Age: 33 Year
  Sex: Female

DRUGS (2)
  1. TYSABRI [Suspect]
     Indication: MULTIPLE SCLEROSIS
     Route: 042
     Dates: start: 20100902, end: 20110119
  2. BENADRYL [Concomitant]
     Indication: PROPHYLAXIS
     Route: 042
     Dates: start: 20110119, end: 20110119

REACTIONS (4)
  - GRAND MAL CONVULSION [None]
  - DOCUMENTED HYPERSENSITIVITY TO ADMINISTERED DRUG [None]
  - ADVERSE DRUG REACTION [None]
  - RESPIRATORY ARREST [None]
